FAERS Safety Report 7136155-8 (Version None)
Quarter: 2010Q4

REPORT INFORMATION
  Report Type: 
  Country: None (occurrence: None)
  Receive Date: 20101206
  Receipt Date: 20101125
  Transmission Date: 20110411
  Serious: Yes (Hospitalization)
  Sender: FDA-Public Use
  Company Number: JP-BRISTOL-MYERS SQUIBB COMPANY-15398613

PATIENT
  Age: 70 Year
  Sex: Female
  Weight: 52 kg

DRUGS (7)
  1. SAXAGLIPTIN [Suspect]
     Indication: TYPE 2 DIABETES MELLITUS
     Dosage: FORM: TABLET.
     Route: 048
     Dates: start: 20101014
  2. AMARYL [Concomitant]
     Dosage: FORM: TABLET,ALSO TAKEN ON 15NOV2010.
     Dates: start: 20101015
  3. MYSLEE [Concomitant]
     Dosage: FORM: TABLET.
     Dates: start: 20101014
  4. CRESTOR [Concomitant]
     Dosage: FORM: TABLET.
     Dates: start: 20080703
  5. JUVELA N [Concomitant]
     Dosage: FORM: GRANULE
     Dates: start: 20091112
  6. AMLODIPINE [Concomitant]
     Dosage: TABLET.
     Dates: start: 19990101
  7. SANCOBA [Concomitant]
     Dosage: EYE DROPS.
     Dates: start: 20010413

REACTIONS (1)
  - ARTERIOSCLEROSIS CORONARY ARTERY [None]
